FAERS Safety Report 14801909 (Version 1)
Quarter: 2018Q2

REPORT INFORMATION
  Report Type: Spontaneous
  Country: US (occurrence: US)
  Receive Date: 20180424
  Receipt Date: 20180424
  Transmission Date: 20180711
  Serious: No
  Sender: FDA-Public Use
  Company Number: US-NAPPMUNDI-USA-2017-0141438

PATIENT
  Sex: Male

DRUGS (2)
  1. OXYCONTIN [Suspect]
     Active Substance: OXYCODONE HYDROCHLORIDE
     Indication: CLAVICLE FRACTURE
     Route: 048
  2. PERCOCET                           /00446701/ [Suspect]
     Active Substance: ACETAMINOPHEN\OXYCODONE HYDROCHLORIDE\OXYCODONE TEREPHTHALATE
     Indication: CLAVICLE FRACTURE
     Route: 048

REACTIONS (2)
  - Drug withdrawal syndrome [Recovered/Resolved]
  - Malaise [Recovered/Resolved]
